FAERS Safety Report 5136442-9 (Version None)
Quarter: 2006Q4

REPORT INFORMATION
  Report Type: 
  Country: None (occurrence: None)
  Receive Date: 20061020
  Receipt Date: 20061018
  Transmission Date: 20070319
  Serious: No
  Sender: FDA-Public Use
  Company Number: BR-2006-012223

PATIENT
  Age: 42 Year
  Sex: Female
  Weight: 86 kg

DRUGS (1)
  1. YASMIN [Suspect]
     Indication: ORAL CONTRACEPTION
     Dosage: 1 TAB (S), ORAL
     Route: 048
     Dates: start: 20041001, end: 20050501

REACTIONS (1)
  - OVARIAN CANCER [None]
